FAERS Safety Report 5990491-7 (Version None)
Quarter: 2008Q4

REPORT INFORMATION
  Report Type: 
  Country: None (occurrence: None)
  Receive Date: 20081209
  Receipt Date: 20081201
  Transmission Date: 20090506
  Serious: Yes (Life-Threatening, Disabling)
  Sender: FDA-Public Use
  Company Number: 08H-163-0315270-00

PATIENT
  Sex: Male

DRUGS (1)
  1. PANHEPRIN [Suspect]
     Dates: start: 20061101

REACTIONS (8)
  - ANTIBODY TEST POSITIVE [None]
  - COLLAPSE OF LUNG [None]
  - DEEP VEIN THROMBOSIS [None]
  - HEPARIN-INDUCED THROMBOCYTOPENIA [None]
  - INFECTION [None]
  - NECROSIS [None]
  - PULMONARY EMBOLISM [None]
  - TOE AMPUTATION [None]
